FAERS Safety Report 5898966-6 (Version None)
Quarter: 2008Q3

REPORT INFORMATION
  Report Type: 
  Country: None (occurrence: None)
  Receive Date: 20080925
  Receipt Date: 20080918
  Transmission Date: 20090109
  Serious: Yes (Other)
  Sender: FDA-Public Use
  Company Number: JP-PFIZER INC-2008070704

PATIENT
  Sex: Female
  Weight: 48.2 kg

DRUGS (10)
  1. ATARAX [Suspect]
     Indication: INDUCTION OF ANAESTHESIA
     Dosage: DAILY DOSE:25MG-FREQ:FREQUENCY: BID
     Route: 030
     Dates: start: 20080707, end: 20080707
  2. ATROPINE [Concomitant]
     Route: 042
     Dates: start: 20080707
  3. PROPOFOL [Concomitant]
     Route: 042
     Dates: start: 20080707
  4. ULTIVA [Concomitant]
     Route: 042
     Dates: start: 20080707
  5. MUSCULAX [Concomitant]
     Route: 042
     Dates: start: 20080707
  6. SEVOFLURANE [Concomitant]
     Dates: start: 20080707
  7. ROPION [Concomitant]
     Route: 042
     Dates: start: 20080707
  8. NEOSTIGMINE METILSULFATE [Concomitant]
     Route: 042
     Dates: start: 20080707
  9. PENTAGIN [Concomitant]
     Route: 030
     Dates: start: 20080707
  10. CEFAZOLIN SODIUM [Concomitant]
     Route: 042
     Dates: start: 20080707, end: 20080708

REACTIONS (1)
  - INAPPROPRIATE ANTIDIURETIC HORMONE SECRETION [None]
